FAERS Safety Report 11139536 (Version 1)
Quarter: 2015Q2

REPORT INFORMATION
  Report Type: Spontaneous
  Country: US (occurrence: None)
  Receive Date: 20150522
  Receipt Date: 20150522
  Transmission Date: 20150821
  Serious: Yes (Other)
  Sender: FDA-Public Use
  Company Number: KAD201505-001247

PATIENT
  Sex: Female

DRUGS (3)
  1. PEGASYS (PEGINTERFERON ALFA-2A) (PEGINTERFERON ALFA-2A) [Concomitant]
  2. RIBAVIRIN. [Suspect]
     Active Substance: RIBAVIRIN
     Indication: HEPATITIS C
  3. INTEFERON (INTERFERON) [Suspect]
     Active Substance: INTERFERON

REACTIONS (2)
  - Homicidal ideation [None]
  - Adverse drug reaction [None]
